FAERS Safety Report 7043041-0 (Version None)
Quarter: 2010Q3

REPORT INFORMATION
  Report Type: 
  Country: None (occurrence: None)
  Receive Date: 20100930
  Receipt Date: 20100726
  Transmission Date: 20110219
  Serious: Yes (Other)
  Sender: FDA-Public Use
  Company Number: M-10-020

PATIENT
  Sex: Female

DRUGS (5)
  1. RIFAMPIN [Suspect]
     Indication: MYCOBACTERIUM AVIUM COMPLEX INFECTION
     Dosage: ORAL (047)
     Route: 048
  2. RIFAMPIN [Suspect]
     Indication: MYOCARDITIS BACTERIAL
     Dosage: ORAL (047)
     Route: 048
  3. ETHAMBUTOL TABLETS [Concomitant]
  4. AZITHROMYCIN [Concomitant]
  5. IBUPROFEN [Concomitant]

REACTIONS (2)
  - CHROMATURIA [None]
  - PRODUCT QUALITY ISSUE [None]
